FAERS Safety Report 24661923 (Version 1)
Quarter: 2024Q4

REPORT INFORMATION
  Report Type: Spontaneous
  Country: SI (occurrence: SI)
  Receive Date: 20241125
  Receipt Date: 20241125
  Transmission Date: 20250115
  Serious: Yes (Hospitalization, Other)
  Sender: JOHNSON AND JOHNSON
  Company Number: SI-JNJFOC-20241148393

PATIENT
  Age: 61 Year
  Sex: Male

DRUGS (1)
  1. SPRAVATO [Suspect]
     Active Substance: ESKETAMINE
     Indication: Bipolar disorder
     Route: 045
     Dates: start: 202406, end: 202409

REACTIONS (8)
  - Bipolar disorder [Unknown]
  - Suicidal ideation [Unknown]
  - Dissociation [Unknown]
  - Sedation [Unknown]
  - Fatigue [Unknown]
  - Withdrawal syndrome [Unknown]
  - Hypersomnia [Unknown]
  - Off label use [Unknown]

NARRATIVE: CASE EVENT DATE: 20240101
